FAERS Safety Report 15496197 (Version 6)
Quarter: 2020Q2

REPORT INFORMATION
  Report Type: Report from Study
  Country: US (occurrence: US)
  Receive Date: 20181012
  Receipt Date: 20200618
  Transmission Date: 20200713
  Serious: Yes (Hospitalization, Other)
  Sender: FDA-Public Use
  Company Number: US-ACTELION-A-NJ2018-179849

PATIENT
  Age: 60 Year
  Sex: Male
  Weight: 64.4 kg

DRUGS (6)
  1. PREDNISONE. [Concomitant]
     Active Substance: PREDNISONE
  2. VENTAVIS [Suspect]
     Active Substance: ILOPROST
     Indication: PULMONARY HYPERTENSION
     Dosage: 5 MCG, 6 TO 9 TIMES PER DAY
     Route: 055
  3. TYVASO [Concomitant]
     Active Substance: TREPROSTINIL
  4. OPSUMIT [Suspect]
     Active Substance: MACITENTAN
     Indication: PULMONARY HYPERTENSION
     Dosage: 10 MG, QD
     Route: 048
     Dates: start: 20180918, end: 20180928
  5. SILDENAFIL. [Concomitant]
     Active Substance: SILDENAFIL
  6. ESBRIET [Concomitant]
     Active Substance: PIRFENIDONE

REACTIONS (14)
  - Cardiac disorder [Unknown]
  - Feeling abnormal [Unknown]
  - Dyspnoea [Recovered/Resolved]
  - Pulmonary hypertension [Unknown]
  - Oxygen saturation decreased [Unknown]
  - Cough [Unknown]
  - Disease progression [Unknown]
  - Pulmonary fibrosis [Unknown]
  - Malaise [Unknown]
  - Oxygen consumption increased [Unknown]
  - Hospitalisation [Unknown]
  - Pulmonary arterial hypertension [Unknown]
  - Exercise tolerance decreased [Unknown]
  - Therapy non-responder [Unknown]

NARRATIVE: CASE EVENT DATE: 20180918
